FAERS Safety Report 5117631-6 (Version None)
Quarter: 2006Q3

REPORT INFORMATION
  Report Type: 
  Country: None (occurrence: None)
  Receive Date: 20060929
  Receipt Date: 20060921
  Transmission Date: 20061208
  Serious: Yes (Hospitalization)
  Sender: FDA-Public Use
  Company Number: ES-ABBOTT-06P-144-0344627-00

PATIENT
  Age: 14 Year
  Sex: Female

DRUGS (4)
  1. DEPAKENE [Suspect]
     Indication: BIPOLAR DISORDER
     Route: 048
     Dates: start: 20040101
  2. LAMOTRIGINE [Interacting]
     Indication: BIPOLAR DISORDER
     Route: 048
     Dates: start: 20060630, end: 20060708
  3. MAGNESIUM LACTATE [Concomitant]
     Indication: BIPOLAR DISORDER
     Route: 048
     Dates: start: 20050101
  4. AMOXICILLIN [Concomitant]
     Indication: UPPER RESPIRATORY TRACT INFECTION
     Dates: start: 20060708

REACTIONS (7)
  - DRUG INTERACTION [None]
  - HYPERSENSITIVITY [None]
  - LYMPHADENOPATHY [None]
  - PRURITUS [None]
  - PYREXIA [None]
  - RASH MACULO-PAPULAR [None]
  - TONGUE DISORDER [None]
